FAERS Safety Report 9533390 (Version 1)
Quarter: 2013Q2

REPORT INFORMATION
  Report Type: Spontaneous
  Country: FR (occurrence: None)
  Receive Date: 20130403
  Receipt Date: 20130403
  Transmission Date: 20140414
  Serious: Yes (Other)
  Sender: FDA-Public Use
  Company Number: US-2012-11522

PATIENT
  Age: 5 Year
  Sex: Male

DRUGS (9)
  1. BUSUFLEX [Suspect]
     Indication: BONE MARROW CONDITIONING REGIMEN
     Dosage: 4 MG/KG, DAILY DOSE, INTRAVENOUS
     Route: 042
  2. CYCLOPHOSPHAMIDE (CYCLOPHOSPHAMIDE) [Concomitant]
  3. ETOPOSIDE (ETOPOSIDE) [Concomitant]
  4. ORTHOCLONE OKT 3 (MUROMONAB-CD3) [Concomitant]
  5. FLUCONAZOLE (FLUCONAZOLE) [Concomitant]
  6. ACYCLOVIR (ACICLOVIR) (ACICLOVIR) [Concomitant]
  7. CIPROFLOXACIN (CIPROFLOXACIN HYDROCHLORIDE) [Concomitant]
  8. TRIMETOPRIM + SULFAMETOXAZOL (SULFAMETHOXAZOLE, TRIMETHOPRIM) [Concomitant]
  9. IMMUNOGLOBULIN (IMMUNOGLOBULIN) [Concomitant]

REACTIONS (1)
  - Cytomegalovirus infection [None]
